FAERS Safety Report 5134343-3 (Version None)
Quarter: 2006Q4

REPORT INFORMATION
  Report Type: 
  Country: None (occurrence: None)
  Receive Date: 20060831
  Receipt Date: 20060405
  Transmission Date: 20070319
  Serious: Yes (Life-Threatening, Hospitalization)
  Sender: FDA-Public Use
  Company Number: 252303

PATIENT
  Age: 57 Year
  Sex: Male
  Weight: 79.4 kg

DRUGS (6)
  1. NOVOLIN N [Suspect]
     Indication: DIABETES MELLITUS INSULIN-DEPENDENT
     Dosage: SUBCUTANEOUS
     Route: 058
     Dates: end: 20060122
  2. NOVOLOG [Suspect]
     Indication: DIABETES MELLITUS INSULIN-DEPENDENT
     Dosage: 17 IU, BID, SUBCUTANEOUS
     Route: 058
     Dates: start: 20020101
  3. LOZOL [Concomitant]
  4. LISINOPRIL [Concomitant]
  5. ZOCOR [Concomitant]
  6. ASA (ACETYSALICYLIC ACID) [Concomitant]

REACTIONS (2)
  - BLOOD GLUCOSE INCREASED [None]
  - HYPOGLYCAEMIC COMA [None]
